FAERS Safety Report 15204513 (Version 5)
Quarter: 2020Q4

REPORT INFORMATION
  Report Type: Spontaneous
  Country: DE (occurrence: DE)
  Receive Date: 20180726
  Receipt Date: 20201113
  Transmission Date: 20210113
  Serious: Yes (Hospitalization, Other)
  Sender: FDA-Public Use
  Company Number: DE-INCYTE CORPORATION-2018IN007296

PATIENT

DRUGS (10)
  1. JAKAVI [Suspect]
     Active Substance: RUXOLITINIB
     Indication: POLYCYTHAEMIA VERA
     Dosage: 5 MG, BID
     Route: 048
     Dates: start: 2018
  2. JAKAVI [Suspect]
     Active Substance: RUXOLITINIB
     Dosage: 5 MG, QOD (EVERY SECOND DAY IN THE EVENING)
     Route: 048
  3. JAKAVI [Suspect]
     Active Substance: RUXOLITINIB
     Dosage: UNK (IN 2018/2019) (ONCE DAILY IN THE EVENING (IN CONSULTATION WITH THE TREATING PHYSICIAN)
     Route: 048
  4. JAKAVI [Suspect]
     Active Substance: RUXOLITINIB
     Dosage: 15 MG, QD (10 MG IN MORNING AND 5 MG IN EVENING)
     Route: 048
     Dates: start: 201805
  5. TAMOXIFEN [Suspect]
     Active Substance: TAMOXIFEN
     Indication: POSTOPERATIVE CARE
     Dosage: UNK
     Route: 065
     Dates: start: 201804, end: 201807
  6. JAKAVI [Suspect]
     Active Substance: RUXOLITINIB
     Dosage: 5 MG, BID
     Route: 048
  7. ELIQUIS [Concomitant]
     Active Substance: APIXABAN
     Indication: PRODUCT USED FOR UNKNOWN INDICATION
     Dosage: UNK
     Route: 065
  8. JAKAVI [Suspect]
     Active Substance: RUXOLITINIB
     Dosage: 10 MG (PER DAY)
     Route: 048
  9. JAKAVI [Suspect]
     Active Substance: RUXOLITINIB
     Dosage: 5 MG (DAILY)
     Route: 048
  10. APIXABAN [Suspect]
     Active Substance: APIXABAN
     Indication: PRODUCT USED FOR UNKNOWN INDICATION
     Dosage: UNK
     Route: 065
     Dates: start: 2018

REACTIONS (8)
  - Blood pressure increased [Unknown]
  - Inappropriate schedule of product administration [Unknown]
  - Renal impairment [Not Recovered/Not Resolved]
  - Pruritus [Unknown]
  - Back disorder [Unknown]
  - Haemoglobin decreased [Unknown]
  - Wrong technique in product usage process [Unknown]
  - Hot flush [Unknown]
